FAERS Safety Report 16050811 (Version 1)
Quarter: 2019Q1

REPORT INFORMATION
  Report Type: Spontaneous
  Country: US (occurrence: US)
  Receive Date: 20190308
  Receipt Date: 20190308
  Transmission Date: 20190418
  Serious: No
  Sender: FDA-Public Use
  Company Number: US-PFIZER INC-2019089732

PATIENT
  Sex: Female

DRUGS (1)
  1. ALAVERT ALLERGY [Suspect]
     Active Substance: LORATADINE
     Dosage: UNK
     Dates: end: 20190225

REACTIONS (1)
  - Drug ineffective [Unknown]
